FAERS Safety Report 8546500-4 (Version None)
Quarter: 2012Q3

REPORT INFORMATION
  Report Type: 
  Country: None (occurrence: None)
  Receive Date: 20120727
  Receipt Date: 20120720
  Transmission Date: 20120928
  Serious: Yes (Other)
  Sender: FDA-Public Use
  Company Number: US-ABBOTT-12P-163-0958675-00

PATIENT
  Sex: Male
  Weight: 90.8 kg

DRUGS (8)
  1. VICODIN [Concomitant]
     Indication: BACK PAIN
  2. FOLIC ACID [Concomitant]
     Indication: GASTRIC DISORDER
  3. METHOTREXATE [Concomitant]
     Indication: RHEUMATOID ARTHRITIS
     Dates: start: 20120201
  4. PREDNISONE [Concomitant]
     Indication: RHEUMATOID ARTHRITIS
  5. HYDROXYCHLOROQUINE SULFATE [Concomitant]
     Indication: RHEUMATOID ARTHRITIS
  6. ATARAX [Concomitant]
     Indication: SEASONAL ALLERGY
  7. HUMIRA [Suspect]
     Indication: RHEUMATOID ARTHRITIS
     Route: 058
     Dates: start: 20120524, end: 20120524
  8. CYCLOBENAZPRINE [Concomitant]
     Indication: SPINAL OSTEOARTHRITIS

REACTIONS (9)
  - PRURITUS GENERALISED [None]
  - DRUG HYPERSENSITIVITY [None]
  - RASH [None]
  - DYSPNOEA [None]
  - RASH GENERALISED [None]
  - URTICARIA [None]
  - INJECTION SITE PAIN [None]
  - PHARYNGEAL OEDEMA [None]
  - LIP SWELLING [None]
